FAERS Safety Report 16780553 (Version 3)
Quarter: 2020Q3

REPORT INFORMATION
  Report Type: Spontaneous
  Country: FR (occurrence: FR)
  Receive Date: 20190906
  Receipt Date: 20200928
  Transmission Date: 20201102
  Serious: Yes (Hospitalization)
  Sender: FDA-Public Use
  Company Number: FR-ROCHE-2399500

PATIENT
  Age: 73 Year
  Sex: Female

DRUGS (1)
  1. LUCENTIS [Suspect]
     Active Substance: RANIBIZUMAB
     Indication: MYOPIA
     Dosage: UNK
     Route: 050
     Dates: start: 20190730, end: 20190730

REACTIONS (3)
  - Visual acuity reduced [Recovering/Resolving]
  - Endophthalmitis [Recovering/Resolving]
  - Eye pain [Recovering/Resolving]

NARRATIVE: CASE EVENT DATE: 20190805
